FAERS Safety Report 26003081 (Version 1)
Quarter: 2025Q4

REPORT INFORMATION
  Report Type: Spontaneous
  Country: US (occurrence: US)
  Receive Date: 20251106
  Receipt Date: 20251106
  Transmission Date: 20260117
  Serious: Yes (Hospitalization, Other)
  Sender: BRISTOL-MYERS SQUIBB COMPANY
  Company Number: US-BRISTOL-MYERS SQUIBB COMPANY-2025-148152

PATIENT
  Age: 68 Year
  Sex: Female
  Weight: 66.68 kg

DRUGS (3)
  1. ORENCIA [Suspect]
     Active Substance: ABATACEPT
     Indication: Rheumatoid arthritis
     Route: 042
     Dates: start: 202507
  2. ORENCIA [Suspect]
     Active Substance: ABATACEPT
     Indication: Rheumatoid arthritis
     Route: 058
  3. neurotome [Concomitant]
     Indication: Product used for unknown indication

REACTIONS (6)
  - Cataract [Unknown]
  - Shoulder fracture [Unknown]
  - Fall [Unknown]
  - Arthropathy [Unknown]
  - Cervical vertebral fracture [Unknown]
  - Drug ineffective [Unknown]
